FAERS Safety Report 9630873 (Version 1)
Quarter: 2013Q4

REPORT INFORMATION
  Report Type: Spontaneous
  Country: US (occurrence: None)
  Receive Date: 20131016
  Receipt Date: 20131016
  Transmission Date: 20140711
  Serious: No
  Sender: FDA-Public Use
  Company Number: None

PATIENT
  Age: 74 Year
  Sex: Female

DRUGS (1)
  1. STIVARGA 40MG BAYER [Suspect]
     Indication: COLON CANCER
     Route: 048
     Dates: start: 20130920

REACTIONS (4)
  - Skin ulcer [None]
  - Nausea [None]
  - Back pain [None]
  - Palmar-plantar erythrodysaesthesia syndrome [None]
